FAERS Safety Report 10329591 (Version 1)
Quarter: 2014Q3

REPORT INFORMATION
  Report Type: Spontaneous
  Country: GB (occurrence: GB)
  Receive Date: 20140721
  Receipt Date: 20140721
  Transmission Date: 20150326
  Serious: Yes (Life-Threatening, Hospitalization, Congenital Anomaly, Other)
  Sender: FDA-Public Use
  Company Number: GB-PFIZER INC-2014202159

PATIENT
  Sex: Male

DRUGS (1)
  1. CHAMPIX [Suspect]
     Active Substance: VARENICLINE TARTRATE
     Dosage: 2 DF, 1X/DAY
     Route: 064
     Dates: start: 20100528, end: 20100730

REACTIONS (2)
  - Maternal exposure during pregnancy [Unknown]
  - Anencephaly [Unknown]

NARRATIVE: CASE EVENT DATE: 20100528
